FAERS Safety Report 17135635 (Version 1)
Quarter: 2019Q4

REPORT INFORMATION
  Report Type: Spontaneous
  Country: IN (occurrence: IN)
  Receive Date: 20191210
  Receipt Date: 20191210
  Transmission Date: 20200122
  Serious: Yes (Death, Other)
  Sender: FDA-Public Use
  Company Number: IN-PFIZER INC-2018035495

PATIENT
  Age: 59 Year
  Sex: Female

DRUGS (10)
  1. PALBACE [Suspect]
     Active Substance: PALBOCICLIB
     Dosage: 100 MG, CYCLIC (D1- D21)
  2. PYRIGESIC [Concomitant]
     Dosage: 1 G, 3X/DAY
  3. PALBACE [Suspect]
     Active Substance: PALBOCICLIB
     Indication: BREAST CANCER METASTATIC
     Dosage: 125 MG, 1X/DAY
     Route: 048
     Dates: start: 20170712
  4. AMBROXOL [Concomitant]
     Active Substance: AMBROXOL
     Dosage: UNK, 3X/DAY (2 TABLESPOON (TSP)
  5. ZOLEDRONIC ACID. [Concomitant]
     Active Substance: ZOLEDRONIC ACID
     Dosage: 4 MG, UNK (IN 100 ML NS OVER 20 MIN)
  6. LETROZOLE. [Concomitant]
     Active Substance: LETROZOLE
     Dosage: 2.5 MG, CYCLIC (OD TO CONTINUE)
  7. CALPOL [Concomitant]
     Active Substance: ACETAMINOPHEN
     Dosage: UNK
  8. ULTRACET [Concomitant]
     Active Substance: ACETAMINOPHEN\TRAMADOL HYDROCHLORIDE
     Dosage: 1 DF, AS NEEDED
  9. SHELCAL HD [Concomitant]
     Dosage: UNK (OD TO CONTINUE)
     Route: 048
  10. CIPLOX [Concomitant]
     Active Substance: CIPROFLOXACIN
     Dosage: UNK, 2X/DAY

REACTIONS (6)
  - Pain [Unknown]
  - Neoplasm progression [Unknown]
  - Neutrophil count decreased [Unknown]
  - White blood cell count decreased [Unknown]
  - Weight decreased [Unknown]
  - Death [Fatal]

NARRATIVE: CASE EVENT DATE: 20191027
